FAERS Safety Report 5743839-2 (Version None)
Quarter: 2008Q2

REPORT INFORMATION
  Report Type: 
  Country: None (occurrence: None)
  Receive Date: 20080519
  Receipt Date: 20080519
  Transmission Date: 20081010
  Serious: Yes (Death)
  Sender: FDA-Public Use
  Company Number: None

PATIENT
  Age: 45 Year
  Sex: Female
  Weight: 51.7101 kg

DRUGS (2)
  1. CEFOXITIN [Suspect]
     Indication: ANTIBIOTIC PROPHYLAXIS
     Dosage: 2 G IV
     Route: 042
     Dates: start: 20080423, end: 20080425
  2. CEFOXITIN [Suspect]

REACTIONS (2)
  - SMALL INTESTINAL PERFORATION [None]
  - WHITE BLOOD CELL COUNT DECREASED [None]
